FAERS Safety Report 5254942-8 (Version None)
Quarter: 2007Q1

REPORT INFORMATION
  Report Type: 
  Country: None (occurrence: None)
  Receive Date: 20070305
  Receipt Date: 20070220
  Transmission Date: 20070707
  Serious: Yes (Hospitalization, Other)
  Sender: FDA-Public Use
  Company Number: PHNR2007AU00703

PATIENT
  Age: 49 Year
  Sex: Female

DRUGS (3)
  1. TRILEPTAL [Suspect]
  2. TEGRETOL [Suspect]
  3. TOPIRAMATE [Concomitant]

REACTIONS (3)
  - CEREBELLAR SYNDROME [None]
  - DRUG TOXICITY [None]
  - SEPSIS [None]
